FAERS Safety Report 4970359-5 (Version None)
Quarter: 2006Q2

REPORT INFORMATION
  Report Type: 
  Country: None (occurrence: None)
  Receive Date: 20060412
  Receipt Date: 20060407
  Transmission Date: 20061013
  Serious: Yes (Death, Other)
  Sender: FDA-Public Use
  Company Number: PHBS2006JP05226

PATIENT
  Age: 65 Year
  Sex: Male

DRUGS (5)
  1. FLUDARABINE [Suspect]
     Dosage: 150 MG/M2/D
     Route: 065
  2. MELPHALAN [Suspect]
     Dosage: 80 MG/M2/D
     Route: 065
  3. IRRADIATION [Suspect]
  4. DIURETICS [Concomitant]
  5. CYCLOSPORINE [Suspect]
     Indication: CORD BLOOD TRANSPLANT THERAPY
     Dosage: UNK, UNK
     Route: 065
     Dates: start: 20030801

REACTIONS (11)
  - BLADDER DISORDER [None]
  - BONE MARROW FAILURE [None]
  - BONE MARROW TRANSPLANT REJECTION [None]
  - CARDIOTOXICITY [None]
  - FEBRILE NEUTROPENIA [None]
  - GASTROINTESTINAL TOXICITY [None]
  - HEPATIC VEIN OCCLUSION [None]
  - HEPATOTOXICITY [None]
  - MUCOSAL INFLAMMATION [None]
  - MULTI-ORGAN FAILURE [None]
  - NEPHROPATHY TOXIC [None]
